FAERS Safety Report 14022713 (Version 1)
Quarter: 2017Q3

REPORT INFORMATION
  Report Type: Spontaneous
  Country: US (occurrence: US)
  Receive Date: 20170929
  Receipt Date: 20170929
  Transmission Date: 20171128
  Serious: Yes (Disabling)
  Sender: FDA-Public Use
  Company Number: None

PATIENT
  Age: 45 Year
  Sex: Female
  Weight: 67.5 kg

DRUGS (1)
  1. PICATO [Suspect]
     Active Substance: INGENOL MEBUTATE
     Indication: ACTINIC KERATOSIS
     Dosage: ?          QUANTITY:1 .015%;?
     Route: 061
     Dates: start: 20170826, end: 20170828

REACTIONS (6)
  - Throat irritation [None]
  - Alopecia [None]
  - Fatigue [None]
  - Lacrimation increased [None]
  - Pulmonary congestion [None]
  - Ear discomfort [None]

NARRATIVE: CASE EVENT DATE: 20170905
